FAERS Safety Report 7570109 (Version 3)
Quarter: 2013Q4

REPORT INFORMATION
  Report Type: Spontaneous
  Country: US (occurrence: US)
  Receive Date: 20100901
  Receipt Date: 20131115
  Transmission Date: 20140711
  Serious: Yes (Hospitalization, Other)
  Sender: FDA-Public Use
  Company Number: US-BAYER-201032151NA

PATIENT
  Age: 15 Year
  Sex: Female
  Weight: 54.42 kg

DRUGS (14)
  1. YASMIN [Suspect]
     Indication: ACNE
     Dosage: UNK UNK, UNK
     Route: 048
     Dates: start: 2005, end: 2008
  2. YAZ [Suspect]
     Indication: ACNE
     Dosage: UNK
     Route: 048
     Dates: start: 2005, end: 2008
  3. OCELLA [Suspect]
     Indication: ACNE
     Dosage: UNK
     Route: 048
     Dates: start: 2005, end: 2008
  4. ORTHO TRICYCLEN [Concomitant]
     Indication: CONTRACEPTION
     Dosage: UNK
     Route: 048
     Dates: start: 2005, end: 2010
  5. ORTHO TRICYCLEN [Concomitant]
     Indication: ACNE
  6. IBUPROFEN [Concomitant]
     Dosage: UNK UNK, PRN
     Route: 048
     Dates: start: 2004
  7. HYPERCARE [Concomitant]
     Dosage: UNK UNK, QD
     Route: 003
     Dates: start: 20070430
  8. APAP W/HYDROCODONE [Concomitant]
     Dosage: UNK
     Dates: start: 20070526
  9. RETIN-A MICRO [Concomitant]
     Dosage: UNK
     Dates: start: 20070604
  10. TUMS [CALCIUM CARBONATE] [Concomitant]
  11. PEPCID [Concomitant]
  12. PEPTO BISMOL [Concomitant]
  13. PROTONIX [Concomitant]
     Dosage: UNK
     Dates: start: 20070430
  14. DRYSOL [Concomitant]
     Indication: HYPERHIDROSIS
     Dosage: UNK; APPLIED NIGHTLY AND TAPER TO EVERY WEEK AS TOLERATED
     Dates: start: 20070430

REACTIONS (3)
  - Cholecystitis chronic [None]
  - Gallbladder disorder [Unknown]
  - Abdominal pain [Unknown]
